FAERS Safety Report 20429982 (Version 1)
Quarter: 2022Q1

REPORT INFORMATION
  Report Type: Report from Study
  Country: FR (occurrence: FR)
  Receive Date: 20220204
  Receipt Date: 20220204
  Transmission Date: 20220423
  Serious: Yes (Hospitalization)
  Sender: FDA-Public Use
  Company Number: FR-SERVIER-S19005342

PATIENT

DRUGS (6)
  1. ONCASPAR [Suspect]
     Active Substance: PEGASPARGASE
     Indication: Acute lymphocytic leukaemia
     Dosage: 2392.5 IU, ON D4
     Route: 042
     Dates: start: 20190117, end: 20190117
  2. VINCRISTINE [Suspect]
     Active Substance: VINCRISTINE
     Indication: Acute lymphocytic leukaemia
     Dosage: 2 MG, ON D1, D8, D15, D22
     Route: 042
     Dates: start: 20190114, end: 20190204
  3. DAUNORUBICIN [Suspect]
     Active Substance: DAUNORUBICIN
     Indication: Acute lymphocytic leukaemia
     Dosage: 57.4 MG, ON D1, D8, D15, D22
     Route: 042
     Dates: start: 20190114, end: 20190204
  4. METHOTREXATE [Suspect]
     Active Substance: METHOTREXATE
     Indication: Acute lymphocytic leukaemia
     Dosage: 15 MG, ON D31
     Route: 037
     Dates: start: 20190117
  5. DEXAMETHASONE [Suspect]
     Active Substance: DEXAMETHASONE
     Indication: Acute lymphocytic leukaemia
     Dosage: 18.5 MG QD FROM D1 TO D21
     Dates: start: 20190114, end: 20190203
  6. Calcidose [Concomitant]
     Indication: Hypocalcaemia
     Dosage: 500 MG
     Route: 048
     Dates: start: 20180820

REACTIONS (1)
  - Confusional state [Recovered/Resolved]

NARRATIVE: CASE EVENT DATE: 20190214
